FAERS Safety Report 5494087-5 (Version None)
Quarter: 2007Q4

REPORT INFORMATION
  Report Type: 
  Country: None (occurrence: None)
  Receive Date: 20071023
  Receipt Date: 20071011
  Transmission Date: 20080405
  Serious: Yes (Hospitalization)
  Sender: FDA-Public Use
  Company Number: US-PFIZER INC-2007087318

PATIENT
  Sex: Male

DRUGS (7)
  1. PREDNISONE [Suspect]
     Dosage: TEXT:UNKNOWN
     Route: 065
  2. ADRIAMYCIN PFS [Suspect]
  3. PROCRIT [Suspect]
     Indication: ANAEMIA OF MALIGNANT DISEASE
  4. ARANESP [Suspect]
     Dosage: DAILY DOSE:200MCG
     Route: 058
  5. VINCRISTINE [Suspect]
  6. CYTOXAN [Suspect]
  7. ALLOPURINOL [Suspect]

REACTIONS (1)
  - FEBRILE NEUTROPENIA [None]
